FAERS Safety Report 7613856 (Version 4)
Quarter: 2014Q1

REPORT INFORMATION
  Report Type: Spontaneous
  Country: US (occurrence: US)
  Receive Date: 20101001
  Receipt Date: 20140106
  Transmission Date: 20141002
  Serious: Yes (Hospitalization)
  Sender: FDA-Public Use
  Company Number: US-BAYER-201035194NA

PATIENT
  Age: 23 Year
  Sex: Female

DRUGS (4)
  1. YAZ [Suspect]
     Route: 048
  2. WELLBUTRIN [Concomitant]
  3. ALBUTEROL [Concomitant]
  4. DROSPIRENONE W/ETHINYLESTRADIOL [Concomitant]

REACTIONS (2)
  - Gallbladder disorder [None]
  - Cholelithiasis [None]
